FAERS Safety Report 10171914 (Version 1)
Quarter: 2014Q2

REPORT INFORMATION
  Report Type: Spontaneous
  Country: CH (occurrence: CH)
  Receive Date: 20140515
  Receipt Date: 20140515
  Transmission Date: 20141212
  Serious: Yes (Hospitalization)
  Sender: FDA-Public Use
  Company Number: CH-PFIZER INC-2014127272

PATIENT
  Age: 88 Year
  Sex: Male

DRUGS (11)
  1. ALDACTONE [Suspect]
     Indication: CARDIAC FAILURE
     Dosage: 25 MG, 2 TO 5 TIMES PER WEEK
     Route: 048
  2. INDERAL [Interacting]
     Indication: ATRIAL FIBRILLATION
     Dosage: 80 MG, 2X/DAY AND 80 MG 1X/DAY TAKEN IN ALTERNANCE 1 DAY OUT OF 2
     Route: 048
  3. COSOPT [Interacting]
     Indication: GLAUCOMA
     Dosage: 1 GTT, 2X/DAY
     Route: 047
  4. COAPROVEL [Interacting]
     Indication: CARDIAC FAILURE
     Dosage: 300 MG/25 MG 1X/DAY
     Route: 048
  5. LASIX [Interacting]
     Indication: CARDIAC FAILURE
     Dosage: 40 MG, AS NEEDED (1X/DAY OR 2X/DAY)
     Route: 048
  6. SINTROM [Suspect]
     Indication: ATRIAL FIBRILLATION
     Dosage: UNK
     Route: 048
  7. SIMCORA [Suspect]
     Indication: LIPIDS ABNORMAL
     Dosage: 20 MG, 1X/DAY
     Route: 048
  8. SPASMO-URGENIN NEO [Interacting]
     Indication: URINARY TRACT DISORDER
     Dosage: 20 MG, 1X/DAY
     Route: 048
  9. TELFAST [Interacting]
     Dosage: 180 MG, 1X/DAY
     Route: 048
  10. DICETEL [Concomitant]
     Dosage: 50 MG, 1X/DAY
     Route: 048
  11. PADMED CIRCOSAN [Concomitant]
     Dosage: 1 DF, 3X/DAY
     Route: 048

REACTIONS (11)
  - Bradycardia [Recovered/Resolved]
  - Hypotension [Recovered/Resolved]
  - Malaise [Recovered/Resolved]
  - Chest pain [Recovered/Resolved]
  - Dyspnoea [Recovered/Resolved]
  - Cardiac failure [Recovered/Resolved]
  - Hyponatraemia [Recovered/Resolved]
  - Gait disturbance [Not Recovered/Not Resolved]
  - Fall [Not Recovered/Not Resolved]
  - Cognitive disorder [Not Recovered/Not Resolved]
  - Drug interaction [Unknown]
